FAERS Safety Report 8787008 (Version 1)
Quarter: 2012Q4

REPORT INFORMATION
  Report Type: 
  Country: US (occurrence: US)
  Receive Date: 20120914
  Receipt Date: 20120914
  Transmission Date: 20130627
  Serious: Yes (Other)
  Sender: FDA-Public Use
  Company Number: PHHY2012US079289

PATIENT
  Sex: Female

DRUGS (2)
  1. AMANTADINE [Suspect]
     Indication: ANTIVIRAL TREATMENT
  2. UNSPECIFIED INGREDIENT [Concomitant]

REACTIONS (5)
  - Pre-eclampsia [Unknown]
  - Premature labour [Unknown]
  - Maternal exposure during pregnancy [Unknown]
  - Foetal growth restriction [None]
  - Caesarean section [None]
